FAERS Safety Report 20141677 (Version 1)
Quarter: 2021Q4

REPORT INFORMATION
  Report Type: Spontaneous
  Country: ES (occurrence: ES)
  Receive Date: 20211202
  Receipt Date: 20211202
  Transmission Date: 20220303
  Serious: Yes (Hospitalization, Other)
  Sender: FDA-Public Use
  Company Number: ES-ABBVIE-21K-144-4182066-00

PATIENT
  Age: 2 Year
  Sex: Female

DRUGS (2)
  1. VALPROIC ACID [Suspect]
     Active Substance: VALPROIC ACID
     Indication: Petit mal epilepsy
     Route: 048
     Dates: start: 20190715, end: 20200607
  2. VALPROIC ACID [Suspect]
     Active Substance: VALPROIC ACID
     Route: 042
     Dates: start: 20200607, end: 20200609

REACTIONS (2)
  - Disseminated intravascular coagulation [Recovered/Resolved]
  - Pancreatitis acute [Recovered/Resolved]

NARRATIVE: CASE EVENT DATE: 20200608
